FAERS Safety Report 7950872-9 (Version None)
Quarter: 2011Q4

REPORT INFORMATION
  Report Type: 
  Country: None (occurrence: None)
  Receive Date: 20111201
  Receipt Date: 20111123
  Transmission Date: 20120403
  Serious: Yes (Other)
  Sender: FDA-Public Use
  Company Number: GR-BIOGENIDEC-2011BI040963

PATIENT
  Age: 35 Year
  Sex: Female
  Weight: 86 kg

DRUGS (8)
  1. LEPUR [Concomitant]
     Indication: HYPERCHOLESTEROLAEMIA
     Route: 048
     Dates: start: 20060101, end: 20111008
  2. SIRALUD [Concomitant]
     Indication: MUSCLE SPASTICITY
     Route: 048
     Dates: start: 20091001, end: 20110712
  3. MODAFANIL [Concomitant]
     Indication: FATIGUE
     Route: 048
     Dates: start: 20060101, end: 20111009
  4. LYRICA [Concomitant]
     Indication: NEURALGIA
     Route: 048
     Dates: start: 20091001, end: 20110910
  5. CALCIORAL [Concomitant]
     Indication: OSTEOPOROSIS PROPHYLAXIS
     Route: 048
     Dates: start: 20101201
  6. VITAMIN TAB [Concomitant]
     Indication: VITAMIN SUPPLEMENTATION
     Route: 048
     Dates: start: 20101201
  7. AVONEX [Suspect]
     Indication: MULTIPLE SCLEROSIS
     Dates: start: 20110329
  8. INDERAL [Concomitant]
     Indication: ARRHYTHMIA
     Route: 048
     Dates: start: 20060101, end: 20111009

REACTIONS (1)
  - PROGRESSIVE MULTIFOCAL LEUKOENCEPHALOPATHY [None]
